FAERS Safety Report 11717905 (Version 1)
Quarter: 2015Q4

REPORT INFORMATION
  Report Type: Spontaneous
  Country: US (occurrence: None)
  Receive Date: 20151109
  Receipt Date: 20151109
  Transmission Date: 20160304
  Serious: No
  Sender: FDA-Public Use
  Company Number: None

PATIENT
  Age: 5 Day
  Sex: Male
  Weight: 81.65 kg

DRUGS (7)
  1. BUPRENORPHINE. [Concomitant]
     Active Substance: BUPRENORPHINE
  2. ACETAMINOPHEN. [Concomitant]
     Active Substance: ACETAMINOPHEN
  3. TAGAMET [Concomitant]
     Active Substance: CIMETIDINE
  4. SENNOKOT-S [Concomitant]
  5. XANAX [Concomitant]
     Active Substance: ALPRAZOLAM
  6. PRUNE JUICE [Concomitant]
  7. SUBOXONE [Suspect]
     Active Substance: BUPRENORPHINE HYDROCHLORIDE\NALOXONE HYDROCHLORIDE
     Indication: DEPRESSION
     Route: 060
     Dates: start: 20131016, end: 20151106

REACTIONS (2)
  - Swollen tongue [None]
  - Glossodynia [None]

NARRATIVE: CASE EVENT DATE: 20151106
